FAERS Safety Report 6859460-9 (Version None)
Quarter: 2010Q3

REPORT INFORMATION
  Report Type: 
  Country: None (occurrence: None)
  Receive Date: 20100719
  Receipt Date: 20080228
  Transmission Date: 20110219
  Serious: No
  Sender: FDA-Public Use
  Company Number: US-PFIZER INC-2008020118

PATIENT
  Sex: Male
  Weight: 95.3 kg

DRUGS (3)
  1. CHANTIX [Suspect]
     Indication: SMOKING CESSATION THERAPY
     Dates: start: 20080203, end: 20080227
  2. AMOXICILLIN [Concomitant]
  3. CLAVULANATE POTASSIUM [Concomitant]

REACTIONS (3)
  - HEADACHE [None]
  - HYPOAESTHESIA FACIAL [None]
  - NAUSEA [None]
